FAERS Safety Report 10257887 (Version 1)
Quarter: 2014Q2

REPORT INFORMATION
  Report Type: Spontaneous
  Country: US (occurrence: None)
  Receive Date: 20140623
  Receipt Date: 20140623
  Transmission Date: 20141212
  Serious: No
  Sender: FDA-Public Use
  Company Number: None

PATIENT
  Age: 52 Year
  Sex: Female

DRUGS (1)
  1. ENBREL [Suspect]
     Indication: RHEUMATOID ARTHRITIS
     Dosage: 50MG  QWEEK  SQ
     Route: 058
     Dates: start: 20131206

REACTIONS (3)
  - Vision blurred [None]
  - Condition aggravated [None]
  - Vision blurred [None]
